FAERS Safety Report 6905913-4 (Version None)
Quarter: 2010Q3

REPORT INFORMATION
  Report Type: 
  Country: None (occurrence: None)
  Receive Date: 20100803
  Receipt Date: 20100803
  Transmission Date: 20110219
  Serious: Yes (Hospitalization)
  Sender: FDA-Public Use
  Company Number: None

PATIENT
  Sex: Male
  Weight: 115.66 kg

DRUGS (4)
  1. FLUOROURACIL [Suspect]
     Dosage: 6552 MG
     Dates: end: 20100721
  2. BEVACIZUMAB (RHUMAB VEGF) [Suspect]
     Dosage: 578
     Dates: end: 20100721
  3. LEUCOVORIN CALCIUM [Suspect]
     Dosage: 936 MG
     Dates: end: 20100721
  4. ELOXATIN [Suspect]
     Dosage: 199 MG
     Dates: end: 20100721

REACTIONS (4)
  - CHEST PAIN [None]
  - DEEP VEIN THROMBOSIS [None]
  - HYPERHIDROSIS [None]
  - PULMONARY EMBOLISM [None]
